FAERS Safety Report 5190438-X (Version None)
Quarter: 2006Q4

REPORT INFORMATION
  Report Type: 
  Country: None (occurrence: None)
  Receive Date: 20061222
  Receipt Date: 20061214
  Transmission Date: 20070319
  Serious: No
  Sender: FDA-Public Use
  Company Number: US-ELI_LILLY_AND_COMPANY-US200612003269

PATIENT
  Age: 54 Year
  Sex: Male

DRUGS (4)
  1. CYMBALTA [Suspect]
     Dosage: 60 MG, UNK
     Dates: start: 20061101
  2. CYMBALTA [Suspect]
     Dosage: 30 MG, UNK
     Dates: start: 20060901, end: 20061101
  3. REQUIP [Concomitant]
  4. ATENOLOL [Concomitant]

REACTIONS (1)
  - HEPATIC ENZYME INCREASED [None]
